FAERS Safety Report 24384371 (Version 1)
Quarter: 2024Q4

REPORT INFORMATION
  Report Type: Spontaneous
  Country: US (occurrence: US)
  Receive Date: 20241001
  Receipt Date: 20241001
  Transmission Date: 20250115
  Serious: No
  Sender: BAYER
  Company Number: US-BAYER-2024A139770

PATIENT
  Age: 80 Year
  Sex: Male

DRUGS (1)
  1. MIRALAX [Suspect]
     Active Substance: POLYETHYLENE GLYCOL 3350
     Indication: Gastrointestinal disorder
     Dosage: HALF A CAP/DOSE DOSE
     Route: 048

REACTIONS (3)
  - Chills [Unknown]
  - Body temperature increased [Unknown]
  - Incorrect dose administered [Unknown]
